FAERS Safety Report 8382186-X (Version None)
Quarter: 2012Q2

REPORT INFORMATION
  Report Type: 
  Country: None (occurrence: None)
  Receive Date: 20120501
  Receipt Date: 20120413
  Transmission Date: 20120825
  Serious: Yes (Other)
  Sender: FDA-Public Use
  Company Number: 003-074

PATIENT
  Age: 58 Year
  Sex: Male

DRUGS (3)
  1. AVALIDE [Concomitant]
  2. CROFAB [Suspect]
     Indication: VENOMOUS BITE
     Dosage: 6 VIALS
     Dates: start: 20120413, end: 20120413
  3. ATENOLOL [Concomitant]

REACTIONS (13)
  - BLOOD PRESSURE DECREASED [None]
  - RESPIRATORY DEPRESSION [None]
  - ANAPHYLACTOID REACTION [None]
  - FEELING HOT [None]
  - PARAESTHESIA [None]
  - UNRESPONSIVE TO STIMULI [None]
  - ASPARTATE AMINOTRANSFERASE INCREASED [None]
  - FLUSHING [None]
  - OEDEMA PERIPHERAL [None]
  - BLOOD ALKALINE PHOSPHATASE INCREASED [None]
  - BLOOD GLUCOSE INCREASED [None]
  - BRADYCARDIA [None]
  - ALANINE AMINOTRANSFERASE INCREASED [None]
